FAERS Safety Report 18002963 (Version 2)
Quarter: 2021Q3

REPORT INFORMATION
  Report Type: Spontaneous
  Country: US (occurrence: US)
  Receive Date: 20200709
  Receipt Date: 20210709
  Transmission Date: 20211014
  Serious: No
  Sender: FDA-Public Use
  Company Number: US-ASTELLAS-2019US036106

PATIENT
  Sex: Female

DRUGS (1)
  1. MYRBETRIQ [Suspect]
     Active Substance: MIRABEGRON
     Indication: STRESS URINARY INCONTINENCE
     Dosage: 25 MG, ONCE DAILY (IN THE MORNING WITH BIO?FEEDBACK)
     Route: 065
     Dates: start: 201908

REACTIONS (1)
  - Constipation [Unknown]
